FAERS Safety Report 17968126 (Version 2)
Quarter: 2020Q3

REPORT INFORMATION
  Report Type: Spontaneous
  Country: US (occurrence: US)
  Receive Date: 20200701
  Receipt Date: 20200814
  Transmission Date: 20201103
  Serious: Yes (Hospitalization, Disabling, Other)
  Sender: FDA-Public Use
  Company Number: US-NOVOPROD-736082

PATIENT
  Sex: Female

DRUGS (3)
  1. NOVOLOG [Suspect]
     Active Substance: INSULIN ASPART
     Indication: TYPE 2 DIABETES MELLITUS
     Dosage: UNK
     Route: 058
     Dates: start: 201801
  2. NOVOLOG [Suspect]
     Active Substance: INSULIN ASPART
     Indication: TYPE 2 DIABETES MELLITUS
     Dosage: UNK
     Route: 058
     Dates: start: 201801
  3. LANTUS [Concomitant]
     Active Substance: INSULIN GLARGINE
     Indication: TYPE 2 DIABETES MELLITUS
     Dosage: UNK
     Route: 058
     Dates: start: 201801

REACTIONS (15)
  - Cellulitis [Not Recovered/Not Resolved]
  - Pneumonia [Unknown]
  - Fall [Recovered/Resolved]
  - Dementia [Unknown]
  - Syringomyelia [Unknown]
  - Arthropathy [Unknown]
  - Fall [Recovered/Resolved]
  - Arthropod bite [Unknown]
  - Loss of consciousness [Recovered/Resolved]
  - Condition aggravated [Unknown]
  - Incontinence [Unknown]
  - Mental disorder [Unknown]
  - Depression [Unknown]
  - Head injury [Unknown]
  - Cyst [Recovering/Resolving]

NARRATIVE: CASE EVENT DATE: 2018
